FAERS Safety Report 11832490 (Version 1)
Quarter: 2015Q4

REPORT INFORMATION
  Report Type: Spontaneous
  Country: US (occurrence: US)
  Receive Date: 20151214
  Receipt Date: 20151214
  Transmission Date: 20160305
  Serious: No
  Sender: FDA-Public Use
  Company Number: US-PFIZER INC-2015420142

PATIENT
  Sex: Male

DRUGS (1)
  1. GLIPIZIDE XL [Suspect]
     Active Substance: GLIPIZIDE
     Dosage: 10 MG, UNK

REACTIONS (2)
  - Malaise [Recovered/Resolved]
  - Nausea [Recovered/Resolved]
